FAERS Safety Report 6458053-5 (Version None)
Quarter: 2009Q4

REPORT INFORMATION
  Report Type: 
  Country: None (occurrence: None)
  Receive Date: 20091125
  Receipt Date: 20090420
  Transmission Date: 20100525
  Serious: No
  Sender: FDA-Public Use
  Company Number: US-AMGEN-COG343736

PATIENT
  Sex: Female

DRUGS (2)
  1. ENBREL [Suspect]
     Indication: RHEUMATOID ARTHRITIS
     Route: 058
     Dates: start: 19991001
  2. METHOTREXATE [Concomitant]
     Route: 058

REACTIONS (4)
  - BIOPSY BONE [None]
  - EXOSTOSIS [None]
  - IMPAIRED HEALING [None]
  - OPEN WOUND [None]
